FAERS Safety Report 13755634 (Version 1)
Quarter: 2017Q3

REPORT INFORMATION
  Report Type: Spontaneous
  Country: ID (occurrence: ID)
  Receive Date: 20170714
  Receipt Date: 20170714
  Transmission Date: 20171127
  Serious: Yes (Other)
  Sender: FDA-Public Use
  Company Number: ID-FRESENIUS KABI-FK201705989

PATIENT
  Age: 68 Year
  Sex: Male

DRUGS (1)
  1. HEPARIN (MANUFACTURER UNKNOWN) [Suspect]
     Active Substance: HEPARIN SODIUM
     Indication: ANTICOAGULANT THERAPY
     Route: 040

REACTIONS (5)
  - Hypovolaemic shock [Recovered/Resolved]
  - Haematoma [Recovering/Resolving]
  - Cardiac failure [Recovered/Resolved]
  - Heparin-induced thrombocytopenia [Recovering/Resolving]
  - Gastrointestinal haemorrhage [Unknown]
